FAERS Safety Report 5817525-4 (Version None)
Quarter: 2008Q3

REPORT INFORMATION
  Report Type: 
  Country: None (occurrence: None)
  Receive Date: 20080722
  Receipt Date: 20080718
  Transmission Date: 20090109
  Serious: Yes (Death)
  Sender: FDA-Public Use
  Company Number: CN-JNJFOC-20080704436

PATIENT
  Age: 60 Year
  Sex: Male

DRUGS (1)
  1. ITRACONAZOLE [Suspect]
     Indication: PULMONARY NECROSIS
     Route: 065

REACTIONS (2)
  - ARRHYTHMIA [None]
  - SUDDEN DEATH [None]
